FAERS Safety Report 5176615-2 (Version None)
Quarter: 2006Q4

REPORT INFORMATION
  Report Type: 
  Country: None (occurrence: None)
  Receive Date: 20061207
  Receipt Date: 20061128
  Transmission Date: 20070319
  Serious: Yes (Life-Threatening, Other)
  Sender: FDA-Public Use
  Company Number: 2006120907

PATIENT
  Age: 78 Year
  Sex: Male

DRUGS (12)
  1. ZYVOX [Suspect]
     Indication: PNEUMONIA STAPHYLOCOCCAL
     Dosage: 1200 MG (600 MG, 2 IN 1 D), INTRAVENOUS
     Route: 042
     Dates: start: 20060927, end: 20060930
  2. CIBENOL (CIBENZOLINE SUCCINATE) [Suspect]
     Indication: ARRHYTHMIA
     Dosage: 300 MG (100 MG, 3 IN 1 D), ORAL
     Route: 048
     Dates: start: 20060925, end: 20060930
  3. DIGOXIN [Suspect]
     Indication: ARRHYTHMIA
     Dosage: 0.125 MG (0.125 MG, 1 IN 1 D), ORAL
     Route: 048
     Dates: start: 20060925, end: 20060930
  4. LANIRAPID (METILDIGOXIN) [Suspect]
     Indication: ARRHYTHMIA
     Dosage: ORAL
     Route: 048
     Dates: start: 20060923, end: 20060930
  5. VERAPAMIL HYDROCHLORIDE [Suspect]
     Indication: ARRHYTHMIA
     Dosage: 120 MG (40 MG, 3 IN 1 D), ORAL
     Route: 048
     Dates: start: 20060920, end: 20060930
  6. CARVEDILOL [Suspect]
     Indication: ARRHYTHMIA
     Dosage: 5 MG (2.5 MG, 2 IN 1 D), ORAL
     Route: 048
     Dates: start: 20060925, end: 20060930
  7. ASPIRIN [Concomitant]
  8. SYMMETREL [Concomitant]
  9. SERMION (NICERGOLINE) [Concomitant]
  10. LASIX [Concomitant]
  11. EBRANTIL (URAPIDIL) [Concomitant]
  12. CASODEX [Concomitant]

REACTIONS (5)
  - ARRHYTHMIA [None]
  - BACTERIA SPUTUM IDENTIFIED [None]
  - BRADYCARDIA [None]
  - STAPHYLOCOCCAL INFECTION [None]
  - TORSADE DE POINTES [None]
